FAERS Safety Report 13447874 (Version 1)
Quarter: 2017Q2

REPORT INFORMATION
  Report Type: Spontaneous
  Country: US (occurrence: US)
  Receive Date: 20170417
  Receipt Date: 20170417
  Transmission Date: 20170830
  Serious: No
  Sender: FDA-Public Use
  Company Number: US-009507513-1703USA013916

PATIENT
  Sex: Male

DRUGS (1)
  1. DULERA [Suspect]
     Active Substance: FORMOTEROL FUMARATE DIHYDRATE\MOMETASONE FUROATE
     Dosage: ROUTE: ORAL INHALATION
     Route: 055
     Dates: start: 2016

REACTIONS (2)
  - Respiratory tract congestion [Not Recovered/Not Resolved]
  - Drug dose omission [Unknown]
